FAERS Safety Report 5061744-4 (Version None)
Quarter: 2006Q3

REPORT INFORMATION
  Report Type: 
  Country: None (occurrence: None)
  Receive Date: 20060720
  Receipt Date: 20060707
  Transmission Date: 20061208
  Serious: Yes (Other)
  Sender: FDA-Public Use
  Company Number: 2006086139

PATIENT
  Age: 54 Year
  Sex: Female
  Weight: 78 kg

DRUGS (4)
  1. SUTENT [Suspect]
     Indication: METASTATIC RENAL CELL CARCINOMA
     Dosage: 50 MG (50 MG, ONCE  - INTERVAL DAILY), ORAL
     Route: 048
     Dates: start: 20060527, end: 20060623
  2. LEVOTHYROXINE SODIUM [Concomitant]
  3. PANTOPRAZOL (PANTOPRAZOLE) [Concomitant]
  4. ESTRADIOL [Concomitant]

REACTIONS (1)
  - VISUAL FIELD DEFECT [None]
